FAERS Safety Report 12505325 (Version 3)
Quarter: 2016Q4

REPORT INFORMATION
  Report Type: Spontaneous
  Country: AU (occurrence: AU)
  Receive Date: 20160628
  Receipt Date: 20161017
  Transmission Date: 20170207
  Serious: Yes (Death, Hospitalization)
  Sender: FDA-Public Use
  Company Number: AU-IPCA LABORATORIES LIMITED-IPC201606-000540

PATIENT
  Age: 53 Year
  Sex: Female

DRUGS (1)
  1. WARFARIN [Suspect]
     Active Substance: WARFARIN
     Indication: ATRIAL FIBRILLATION
     Route: 048

REACTIONS (6)
  - Thrombocytopenia [Recovered/Resolved]
  - Deep vein thrombosis [Fatal]
  - International normalised ratio increased [Recovered/Resolved]
  - Sepsis [Fatal]
  - Gangrene [Fatal]
  - Coagulopathy [Fatal]
